FAERS Safety Report 26054779 (Version 1)
Quarter: 2025Q4

REPORT INFORMATION
  Report Type: Spontaneous
  Country: EU (occurrence: EU)
  Receive Date: 20251117
  Receipt Date: 20251117
  Transmission Date: 20260118
  Serious: Yes (Hospitalization)
  Sender: BAUSCH AND LOMB
  Company Number: None

PATIENT
  Age: 62 Year
  Sex: Female
  Weight: 66 kg

DRUGS (10)
  1. VENLAFAXINE [Suspect]
     Active Substance: VENLAFAXINE HYDROCHLORIDE
     Indication: Poisoning deliberate
     Route: 048
     Dates: start: 20251016, end: 20251016
  2. VENLAFAXINE [Suspect]
     Active Substance: VENLAFAXINE HYDROCHLORIDE
     Dosage: DOSE REINTRODUCED
     Route: 065
  3. ACETAMINOPHEN [Suspect]
     Active Substance: ACETAMINOPHEN
     Indication: Poisoning deliberate
     Route: 048
     Dates: start: 20251016, end: 20251016
  4. ACETAMINOPHEN [Suspect]
     Active Substance: ACETAMINOPHEN
     Dosage: DOSE REINTRODUCED
     Route: 065
  5. TRAMADOL [Suspect]
     Active Substance: TRAMADOL
     Indication: Poisoning deliberate
     Route: 048
     Dates: start: 20251016, end: 20251016
  6. TRAMADOL [Suspect]
     Active Substance: TRAMADOL
     Dosage: DRUG REINTRODUCED
     Route: 065
  7. MIRTAZAPINE [Suspect]
     Active Substance: MIRTAZAPINE
     Indication: Poisoning deliberate
     Route: 048
     Dates: start: 20251016, end: 20251016
  8. MIRTAZAPINE [Suspect]
     Active Substance: MIRTAZAPINE
     Dosage: DOSE RE-INTRODUCED
     Route: 065
  9. ZOPICLONE [Suspect]
     Active Substance: ZOPICLONE
     Indication: Poisoning deliberate
     Route: 048
     Dates: start: 20251016, end: 20251016
  10. ZOPICLONE [Suspect]
     Active Substance: ZOPICLONE
     Dosage: DOSE RE-INTRODUCED
     Route: 065

REACTIONS (5)
  - Poisoning deliberate [Recovered/Resolved]
  - Palpitations [Recovered/Resolved]
  - Hepatic cytolysis [Recovering/Resolving]
  - Lactic acidosis [Recovered/Resolved]
  - Acute coronary syndrome [Recovering/Resolving]

NARRATIVE: CASE EVENT DATE: 20251016
